FAERS Safety Report 6965684-2 (Version None)
Quarter: 2010Q3

REPORT INFORMATION
  Report Type: 
  Country: None (occurrence: None)
  Receive Date: 20100903
  Receipt Date: 20100824
  Transmission Date: 20110219
  Serious: Yes (Hospitalization)
  Sender: FDA-Public Use
  Company Number: JP-ROCHE-723757

PATIENT
  Sex: Male
  Weight: 76.9 kg

DRUGS (5)
  1. TOCILIZUMAB [Suspect]
     Indication: RHEUMATOID ARTHRITIS
     Route: 058
     Dates: start: 20100611
  2. PREDNISOLONE [Concomitant]
     Dosage: DOSE FORM: POWDERED MEDICINE
     Route: 048
     Dates: start: 20100208
  3. ISCOTIN [Concomitant]
     Route: 048
     Dates: start: 20100426
  4. PYDOXAL [Concomitant]
     Route: 048
     Dates: start: 20100426
  5. RINDERON-VG [Concomitant]
     Dosage: FORM: OINTMENT AND CREM; NOTE: PROPER QUANTITY
     Route: 061
     Dates: start: 20100820

REACTIONS (1)
  - ASTHMA [None]
